FAERS Safety Report 8749505 (Version 3)
Quarter: 2013Q2

REPORT INFORMATION
  Report Type: Spontaneous
  Country: US (occurrence: None)
  Receive Date: 20120808
  Receipt Date: 20130418
  Transmission Date: 20140414
  Serious: Yes (Disabling, Other)
  Sender: FDA-Public Use
  Company Number: JPI-P-019362

PATIENT
  Age: 57 Year
  Sex: Female
  Weight: 56.7 kg

DRUGS (8)
  1. XYREM [Suspect]
     Indication: NARCOLEPSY
     Dosage: (2.25 GM, 2 IN 1 D)
     Route: 048
     Dates: start: 20080411, end: 20130218
  2. XYREM [Suspect]
     Indication: SOMNOLENCE
     Dosage: (2.25 GM, 2 IN 1 D)
     Route: 048
     Dates: start: 20080411, end: 20130218
  3. PREDNISONE [Suspect]
     Dosage: 7.5 MG TO 30 MG PER DAY, ORAL
     Route: 048
     Dates: start: 201202
  4. MODAFINIL [Suspect]
     Indication: CATAPLEXY
  5. ANTIHYPERTENSIVES [Concomitant]
  6. LABETALOL HYDROCHLORIDE [Concomitant]
  7. HYDROCHLOROTHIAZIDE AND TRIAMTERENE [Concomitant]
  8. OMEPRAZOLE [Concomitant]

REACTIONS (11)
  - Tinnitus [None]
  - Deafness bilateral [None]
  - Autoimmune inner ear disease [None]
  - Nerve injury [None]
  - Insomnia [None]
  - Fatigue [None]
  - Influenza like illness [None]
  - Pyrexia [None]
  - Dizziness [None]
  - Vision blurred [None]
  - Hypertension [None]
